FAERS Safety Report 5039148-X (Version None)
Quarter: 2006Q2

REPORT INFORMATION
  Report Type: 
  Country: None (occurrence: None)
  Receive Date: 20060629
  Receipt Date: 20060607
  Transmission Date: 20061013
  Serious: Yes (Life-Threatening, Hospitalization)
  Sender: FDA-Public Use
  Company Number: NO-GLAXOSMITHKLINE-B0426981A

PATIENT
  Age: 43 Year
  Sex: Male

DRUGS (2)
  1. AVANDAMET [Suspect]
     Dosage: 2MG TWICE PER DAY
     Route: 048
     Dates: start: 20060307, end: 20060407
  2. METFORMIN [Concomitant]
     Dosage: 1000MG TWICE PER DAY
     Route: 065

REACTIONS (10)
  - ABNORMAL BEHAVIOUR [None]
  - DEPRESSED LEVEL OF CONSCIOUSNESS [None]
  - DIZZINESS [None]
  - EYE ROLLING [None]
  - FEELING DRUNK [None]
  - HYPOGLYCAEMIA [None]
  - MALAISE [None]
  - PAIN [None]
  - SYNCOPE [None]
  - TONGUE BITING [None]
